FAERS Safety Report 12833785 (Version 1)
Quarter: 2016Q4

REPORT INFORMATION
  Report Type: Spontaneous
  Country: ZA (occurrence: ZA)
  Receive Date: 20161010
  Receipt Date: 20161010
  Transmission Date: 20170207
  Serious: Yes (Death, Hospitalization)
  Sender: FDA-Public Use
  Company Number: PHHY2016ZA135761

PATIENT
  Age: 21 Year
  Sex: Female

DRUGS (1)
  1. RIFAMPICIN+ISONIAZID [Suspect]
     Active Substance: ISONIAZID\RIFAMPIN
     Indication: TUBERCULOSIS
     Dosage: 70 DF, UNK
     Route: 065

REACTIONS (4)
  - Metabolic acidosis [Fatal]
  - Loss of consciousness [Fatal]
  - Blood creatinine increased [Recovered/Resolved]
  - Intentional overdose [Fatal]
